FAERS Safety Report 7215278-9 (Version None)
Quarter: 2011Q1

REPORT INFORMATION
  Report Type: 
  Country: None (occurrence: None)
  Receive Date: 20110107
  Receipt Date: 20101231
  Transmission Date: 20110831
  Serious: Yes (Hospitalization)
  Sender: FDA-Public Use
  Company Number: PHHY2010US78928

PATIENT
  Sex: Male

DRUGS (11)
  1. FOLIC ACID [Concomitant]
  2. NEUPOGEN [Concomitant]
  3. METFORMIN [Concomitant]
  4. VIDAZA [Concomitant]
  5. EXJADE [Suspect]
     Indication: MYELODYSPLASTIC SYNDROME
     Dosage: 1250MG DAILY
     Route: 048
     Dates: start: 20101115
  6. OMEPRAZOLE [Concomitant]
  7. METOPROLOL [Concomitant]
  8. EXJADE [Suspect]
     Dosage: UNK
  9. CALCIUM [Concomitant]
  10. MULTI-VITAMIN [Concomitant]
  11. PROCRIT [Concomitant]

REACTIONS (5)
  - ASTHENIA [None]
  - FATIGUE [None]
  - SURGERY [None]
  - PAIN [None]
  - DIARRHOEA [None]
